FAERS Safety Report 7384193-2 (Version None)
Quarter: 2011Q1

REPORT INFORMATION
  Report Type: 
  Country: None (occurrence: None)
  Receive Date: 20110330
  Receipt Date: 20110323
  Transmission Date: 20110831
  Serious: Yes (Other)
  Sender: FDA-Public Use
  Company Number: B0709432A

PATIENT
  Age: 88 Year
  Sex: Male
  Weight: 115 kg

DRUGS (7)
  1. ANAFRANIL [Concomitant]
     Dosage: 20MG PER DAY
     Route: 048
  2. TAVANIC [Concomitant]
     Route: 065
  3. RIMACTANE [Concomitant]
     Route: 065
  4. DALACIN [Suspect]
     Route: 048
     Dates: start: 20100417, end: 20100422
  5. MEPHANOL [Concomitant]
     Route: 048
     Dates: end: 20100417
  6. AMARYL [Concomitant]
     Dosage: 2MG PER DAY
     Route: 048
  7. AUGMENTIN [Suspect]
     Indication: OSTEOMYELITIS
     Route: 048
     Dates: start: 20100417, end: 20100421

REACTIONS (4)
  - TYPE I HYPERSENSITIVITY [None]
  - RASH MACULAR [None]
  - PURPURA [None]
  - PRURITUS [None]
